FAERS Safety Report 9404033 (Version 1)
Quarter: 2013Q3

REPORT INFORMATION
  Report Type: Spontaneous
  Country: DE (occurrence: DE)
  Receive Date: 20130717
  Receipt Date: 20130717
  Transmission Date: 20140515
  Serious: Yes (Hospitalization)
  Sender: FDA-Public Use
  Company Number: DE-ELI_LILLY_AND_COMPANY-DE201307002203

PATIENT
  Sex: Male

DRUGS (3)
  1. CYMBALTA [Suspect]
     Indication: POLYNEUROPATHY
     Dosage: 60 MG, UNKNOWN
     Route: 048
     Dates: start: 20130430, end: 20130621
  2. APIDRA [Concomitant]
     Indication: DIABETES MELLITUS
  3. NOVAMINSULFON [Concomitant]
     Dosage: UNK
     Dates: start: 20130606, end: 20130621

REACTIONS (3)
  - Liver disorder [Recovering/Resolving]
  - Transaminases increased [Recovering/Resolving]
  - Ocular icterus [Recovering/Resolving]
